FAERS Safety Report 24124745 (Version 1)
Quarter: 2024Q3

REPORT INFORMATION
  Report Type: Spontaneous
  Country: US (occurrence: US)
  Receive Date: 20240723
  Receipt Date: 20240723
  Transmission Date: 20241016
  Serious: No
  Sender: PAREXEL
  Company Number: US- Coherus Biosciences INC- 2024-COH-US000535

PATIENT

DRUGS (4)
  1. UDENYCA [Suspect]
     Active Substance: PEGFILGRASTIM-CBQV
     Indication: Breast cancer
     Dosage: 6 MG
     Route: 058
     Dates: start: 20240403, end: 20240403
  2. UDENYCA [Suspect]
     Active Substance: PEGFILGRASTIM-CBQV
     Dosage: 6 MG
     Route: 058
     Dates: start: 20240426, end: 20240426
  3. UDENYCA [Suspect]
     Active Substance: PEGFILGRASTIM-CBQV
     Dosage: 6 MG
     Route: 058
     Dates: start: 20240522, end: 20240522
  4. UDENYCA [Suspect]
     Active Substance: PEGFILGRASTIM-CBQV
     Dosage: 6 MG, Q3WEEKS
     Route: 058
     Dates: start: 20240612

REACTIONS (4)
  - Product dose omission issue [Not Recovered/Not Resolved]
  - Accidental exposure to product [Recovered/Resolved]
  - Device leakage [Recovered/Resolved]
  - Device malfunction [Recovered/Resolved]

NARRATIVE: CASE EVENT DATE: 20240613
